FAERS Safety Report 7659165-0 (Version None)
Quarter: 2011Q3

REPORT INFORMATION
  Report Type: 
  Country: None (occurrence: None)
  Receive Date: 20110805
  Receipt Date: 20110728
  Transmission Date: 20111222
  Serious: Yes (Hospitalization)
  Sender: FDA-Public Use
  Company Number: GB-GLAXOSMITHKLINE-B0737012A

PATIENT
  Sex: Male

DRUGS (11)
  1. BISOPROLOL FUMARATE [Concomitant]
  2. FINASTERIDE [Concomitant]
  3. ALLOPURINOL [Concomitant]
     Dates: start: 20100920
  4. MULTI-VITAMIN [Concomitant]
  5. FOLIC ACID [Concomitant]
  6. TAMSULOSIN HCL [Concomitant]
  7. DOXYCYCLINE [Concomitant]
  8. CHLORAMBUCIL [Suspect]
     Indication: CHRONIC LYMPHOCYTIC LEUKAEMIA
     Dosage: 30MG PER DAY
     Route: 048
     Dates: start: 20100920
  9. CO-AMILOFRUSE [Concomitant]
  10. SIMVADOR [Concomitant]
  11. NEUPOGEN [Concomitant]

REACTIONS (1)
  - NEUTROPENIC INFECTION [None]
